FAERS Safety Report 9401139 (Version 2)
Quarter: 2014Q1

REPORT INFORMATION
  Report Type: Spontaneous
  Country: DK (occurrence: DK)
  Receive Date: 20130715
  Receipt Date: 20140314
  Transmission Date: 20141002
  Serious: Yes (Disabling, Other)
  Sender: FDA-Public Use
  Company Number: DK-GE HEALTHCARE MEDICAL DIAGNOSTICS-OSCN-E2B_00000027

PATIENT
  Age: 55 Year
  Sex: Female

DRUGS (11)
  1. OMNISCAN [Suspect]
     Indication: SCAN WITH CONTRAST
     Route: 042
     Dates: start: 20020115, end: 20020115
  2. OMNISCAN [Suspect]
     Indication: PRODUCT USED FOR UNKNOWN INDICATION
  3. MAGNEVIST [Suspect]
     Indication: PRODUCT USED FOR UNKNOWN INDICATION
     Route: 042
     Dates: start: 20060626, end: 20060626
  4. GADOLINIUM [Suspect]
     Indication: NUCLEAR MAGNETIC RESONANCE IMAGING
     Route: 065
     Dates: start: 20020719, end: 20020719
  5. EMPERAL [Concomitant]
     Route: 048
  6. KININ ^DAK^ [Concomitant]
  7. LACTULOSE [Concomitant]
  8. METOCLOPRAMID [Concomitant]
  9. REMERON [Concomitant]
  10. SERENASE [Concomitant]
  11. PREDNISOLONE [Concomitant]

REACTIONS (11)
  - Wheelchair user [Not Recovered/Not Resolved]
  - Onychomycosis [Not Recovered/Not Resolved]
  - Abdominal pain [Not Recovered/Not Resolved]
  - Nephrogenic systemic fibrosis [Not Recovered/Not Resolved]
  - Ulcer [Not Recovered/Not Resolved]
  - Muscle atrophy [Not Recovered/Not Resolved]
  - Abasia [Not Recovered/Not Resolved]
  - Arthralgia [Not Recovered/Not Resolved]
  - Pain of skin [Not Recovered/Not Resolved]
  - Skin hypertrophy [Not Recovered/Not Resolved]
  - Oedema peripheral [Not Recovered/Not Resolved]
